FAERS Safety Report 10272857 (Version 1)
Quarter: 2014Q2

REPORT INFORMATION
  Report Type: Spontaneous
  Country: US (occurrence: None)
  Receive Date: 20140627
  Receipt Date: 20140627
  Transmission Date: 20141212
  Serious: Yes (Hospitalization)
  Sender: FDA-Public Use
  Company Number: None

PATIENT
  Age: 33 Year
  Sex: Male
  Weight: 110 kg

DRUGS (2)
  1. DASATINIB [Suspect]
     Indication: CHONDROSARCOMA
     Route: 048
     Dates: start: 20080909
  2. ZOMETA [Concomitant]

REACTIONS (11)
  - Malignant neoplasm progression [None]
  - Chondrosarcoma [None]
  - Subdural haematoma [None]
  - Pyrexia [None]
  - Incision site swelling [None]
  - Headache [None]
  - Swelling face [None]
  - Post procedural infection [None]
  - Abscess [None]
  - Graft infection [None]
  - Staphylococcus test positive [None]
